FAERS Safety Report 7352286-1 (Version None)
Quarter: 2011Q1

REPORT INFORMATION
  Report Type: 
  Country: None (occurrence: None)
  Receive Date: 20110309
  Receipt Date: 20110309
  Transmission Date: 20110831
  Serious: Yes (Disabling)
  Sender: FDA-Public Use
  Company Number: None

PATIENT
  Age: 14 Year
  Sex: Male
  Weight: 48.9885 kg

DRUGS (6)
  1. LEXAPRO [Concomitant]
  2. HALOPERIDOL [Suspect]
     Indication: AGGRESSION
     Dosage: 5MG HS IM
     Route: 030
     Dates: start: 20110131, end: 20110201
  3. HALOPERIDOL [Suspect]
     Indication: AGITATION
     Dosage: 5MG HS IM
     Route: 030
     Dates: start: 20110131, end: 20110201
  4. LEVOTHYROXINE SODIUM [Concomitant]
  5. SINGULAIR [Concomitant]
  6. RISPERDAL [Suspect]
     Indication: AFFECTIVE DISORDER
     Dosage: 1MG Q HS PO
     Route: 048
     Dates: start: 20110129, end: 20110131

REACTIONS (1)
  - DYSTONIA [None]
